FAERS Safety Report 5253904-4 (Version None)
Quarter: 2007Q1

REPORT INFORMATION
  Report Type: 
  Country: None (occurrence: None)
  Receive Date: 20070228
  Receipt Date: 20070228
  Transmission Date: 20070707
  Serious: Yes (Hospitalization)
  Sender: FDA-Public Use
  Company Number: None

PATIENT
  Age: 58 Year
  Sex: Male

DRUGS (14)
  1. CISAPRIDE [Suspect]
     Indication: DIABETIC GASTROPARESIS
     Dosage: 10 MG PO BID
     Route: 048
  2. HYDROCODONE [Concomitant]
  3. PROGRAF [Concomitant]
  4. PREDNISONE [Concomitant]
  5. SULFA [Concomitant]
  6. TOPROL-XL [Concomitant]
  7. NORVASC [Concomitant]
  8. LISINOPRIL [Concomitant]
  9. LASIX [Concomitant]
  10. MONOXIDIL [Concomitant]
  11. PROPULSID [Concomitant]
  12. ASPIRIN [Concomitant]
  13. LANTUS [Concomitant]
  14. HUMALOG [Concomitant]

REACTIONS (5)
  - BLOOD CREATININE INCREASED [None]
  - BLOOD POTASSIUM INCREASED [None]
  - BLOOD UREA INCREASED [None]
  - GANGRENE [None]
  - LEG AMPUTATION [None]
